FAERS Safety Report 5678948-X (Version None)
Quarter: 2008Q1

REPORT INFORMATION
  Report Type: 
  Country: None (occurrence: None)
  Receive Date: 20080325
  Receipt Date: 20080317
  Transmission Date: 20080703
  Serious: Yes (Hospitalization)
  Sender: FDA-Public Use
  Company Number: US-ABBOTT-08P-163-0442817-00

PATIENT
  Sex: Male
  Weight: 71.278 kg

DRUGS (16)
  1. ZEMPLAR [Suspect]
     Indication: HYPERPARATHYROIDISM
     Route: 048
     Dates: start: 20080201
  2. GLIBENCLAMIDE [Concomitant]
     Indication: DIABETES MELLITUS
     Route: 048
  3. AMLIDOPINE [Concomitant]
     Indication: BLOOD PRESSURE
     Route: 048
  4. FUROSEMIDE [Concomitant]
     Indication: BLOOD PRESSURE
     Route: 048
  5. FUROSEMIDE [Concomitant]
     Indication: FLUID RETENTION
  6. CANDESARTAN CILEXETIL [Concomitant]
     Indication: BLOOD PRESSURE
     Route: 048
  7. CLONIDINE [Concomitant]
     Indication: BLOOD PRESSURE
     Route: 048
  8. CARVIDOLOL [Concomitant]
     Indication: BLOOD PRESSURE
     Route: 048
  9. HYDROXADRINE [Concomitant]
     Indication: BLOOD PRESSURE
     Route: 048
  10. CALCIUM ACETATE [Concomitant]
     Indication: BLOOD PHOSPHORUS DECREASED
     Route: 048
  11. CYANOCOBALAMIN [Concomitant]
     Indication: VITAMIN SUPPLEMENTATION
     Route: 048
  12. FOLIC ACID [Concomitant]
     Indication: VITAMIN SUPPLEMENTATION
     Route: 048
  13. ERGOCALCIFEROL [Concomitant]
     Indication: VITAMIN SUPPLEMENTATION
     Route: 048
  14. FERROUS SULFATE TAB [Concomitant]
     Indication: ANAEMIA
     Route: 048
  15. ASPIRIN [Concomitant]
     Indication: CARDIOVASCULAR EVENT PROPHYLAXIS
     Route: 048
  16. PROCIT [Concomitant]
     Indication: ANAEMIA
     Route: 050

REACTIONS (4)
  - ANOREXIA [None]
  - RENAL FAILURE ACUTE [None]
  - THINKING ABNORMAL [None]
  - VOMITING [None]
